FAERS Safety Report 14312233 (Version 1)
Quarter: 2017Q4

REPORT INFORMATION
  Report Type: Spontaneous
  Country: CA (occurrence: CA)
  Receive Date: 20171221
  Receipt Date: 20171221
  Transmission Date: 20180321
  Serious: Yes (Other)
  Sender: FDA-Public Use
  Company Number: CA-ROCHE-2030266

PATIENT
  Sex: Female

DRUGS (4)
  1. ARAVA [Suspect]
     Active Substance: LEFLUNOMIDE
     Indication: RHEUMATOID ARTHRITIS
     Route: 065
  2. RITUXAN [Suspect]
     Active Substance: RITUXIMAB
     Indication: RHEUMATOID ARTHRITIS
     Dosage: LAST DOSE WAS ON 19/OCT/2017
     Route: 065
  3. METHOTREXATE. [Suspect]
     Active Substance: METHOTREXATE
     Indication: RHEUMATOID ARTHRITIS
     Route: 065
  4. PREDNISONE. [Concomitant]
     Active Substance: PREDNISONE
     Route: 065
     Dates: start: 20171107

REACTIONS (9)
  - Joint swelling [Unknown]
  - Myalgia [Unknown]
  - Drug ineffective [Unknown]
  - Deformity [Unknown]
  - Arthralgia [Unknown]
  - Hypersensitivity [Unknown]
  - Pain [Unknown]
  - Type IV hypersensitivity reaction [Unknown]
  - Drug hypersensitivity [Unknown]
